FAERS Safety Report 6671205-4 (Version None)
Quarter: 2010Q2

REPORT INFORMATION
  Report Type: 
  Country: None (occurrence: None)
  Receive Date: 20100406
  Receipt Date: 20100406
  Transmission Date: 20101027
  Serious: Yes (Other)
  Sender: FDA-Public Use
  Company Number: None

PATIENT
  Age: 43 Year
  Sex: Female
  Weight: 56.246 kg

DRUGS (1)
  1. TOPIRAMATE [Suspect]
     Indication: MIGRAINE
     Dosage: 50MG PO BID
     Route: 048
     Dates: start: 20100301, end: 20100401

REACTIONS (3)
  - DIZZINESS [None]
  - NAUSEA [None]
  - TREMOR [None]
